FAERS Safety Report 15463905 (Version 2)
Quarter: 2019Q2

REPORT INFORMATION
  Report Type: Spontaneous
  Country: US (occurrence: US)
  Receive Date: 20181004
  Receipt Date: 20190521
  Transmission Date: 20190711
  Serious: Yes (Hospitalization, Other)
  Sender: FDA-Public Use
  Company Number: US-PFIZER INC-2018397911

PATIENT
  Age: 56 Year
  Sex: Female
  Weight: 116 kg

DRUGS (1)
  1. XELJANZ [Suspect]
     Active Substance: TOFACITINIB CITRATE
     Indication: RHEUMATOID ARTHRITIS
     Dosage: 5 MG, 2X/DAY
     Route: 048
     Dates: start: 201702

REACTIONS (4)
  - White blood cell count abnormal [Recovered/Resolved]
  - Abdominal pain [Unknown]
  - Retching [Unknown]
  - Hepatic enzyme increased [Recovered/Resolved]
